FAERS Safety Report 5512814-5 (Version None)
Quarter: 2007Q4

REPORT INFORMATION
  Report Type: 
  Country: None (occurrence: None)
  Receive Date: 20071108
  Receipt Date: 20071025
  Transmission Date: 20080405
  Serious: Yes (Hospitalization)
  Sender: FDA-Public Use
  Company Number: JP-1164465

PATIENT
  Age: 86 Year
  Sex: Female

DRUGS (2)
  1. BSS PLUS [Suspect]
     Indication: CATARACT OPERATION COMPLICATION
     Dosage: INTRAOCULAR
     Route: 031
     Dates: start: 20070718, end: 20070718
  2. VISCOAT [Suspect]
     Dosage: INTRAOCULAR
     Route: 031
     Dates: start: 20070718, end: 20070718

REACTIONS (2)
  - CORNEAL OPACITY [None]
  - VISUAL ACUITY REDUCED [None]
